FAERS Safety Report 20732532 (Version 3)
Quarter: 2023Q2

REPORT INFORMATION
  Report Type: Spontaneous
  Country: US (occurrence: US)
  Receive Date: 20220420
  Receipt Date: 20230630
  Transmission Date: 20230722
  Serious: Yes (Hospitalization, Other)
  Sender: FDA-Public Use
  Company Number: US-009507513-2204USA006448

PATIENT
  Sex: Female

DRUGS (8)
  1. KEYTRUDA [Suspect]
     Active Substance: PEMBROLIZUMAB
     Indication: Endometrial cancer
     Dosage: UNK
     Route: 042
     Dates: start: 20220225
  2. LENVATINIB MESYLATE [Suspect]
     Active Substance: LENVATINIB MESYLATE
     Indication: Endometrial cancer
     Dosage: 14 MILLIGRAM, QD
     Route: 048
     Dates: start: 20220225, end: 20220519
  3. LENVATINIB MESYLATE [Suspect]
     Active Substance: LENVATINIB MESYLATE
     Dosage: 14 MILLIGRAM, QD
     Route: 048
     Dates: start: 2022, end: 2023
  4. LENVATINIB MESYLATE [Suspect]
     Active Substance: LENVATINIB MESYLATE
     Dosage: 12 MILLIGRAM, QD
     Route: 048
     Dates: start: 2023
  5. AMLODIPINE [Concomitant]
     Active Substance: AMLODIPINE BESYLATE
  6. DILTIAZEM [Concomitant]
     Active Substance: DILTIAZEM
  7. BENAZEPRIL [Concomitant]
     Active Substance: BENAZEPRIL HYDROCHLORIDE
  8. ELIQUIS [Concomitant]
     Active Substance: APIXABAN

REACTIONS (48)
  - Cardiac flutter [Unknown]
  - Hypertension [Unknown]
  - Blood pressure fluctuation [Unknown]
  - Dizziness [Unknown]
  - Fatigue [Unknown]
  - Constipation [Unknown]
  - Faeces discoloured [Unknown]
  - Abdominal pain upper [Unknown]
  - Groin pain [Unknown]
  - Arthralgia [Unknown]
  - Weight decreased [Unknown]
  - Rash macular [Unknown]
  - Blood lactic acid increased [Unknown]
  - Pruritus [Unknown]
  - Nasal congestion [Unknown]
  - Throat irritation [Unknown]
  - Chapped lips [Unknown]
  - Lip swelling [Unknown]
  - Thrombosis [Unknown]
  - Visual impairment [Unknown]
  - Epistaxis [Unknown]
  - Oedema peripheral [Unknown]
  - White blood cell count decreased [Unknown]
  - Thyroid function test abnormal [Unknown]
  - Red blood cell count decreased [Unknown]
  - Nausea [Unknown]
  - Muscle atrophy [Unknown]
  - Mood swings [Unknown]
  - Pain in extremity [Unknown]
  - Back pain [Recovered/Resolved]
  - Abdominal distension [Unknown]
  - Flatulence [Unknown]
  - Vomiting [Unknown]
  - Nausea [Unknown]
  - Diarrhoea [Unknown]
  - Musculoskeletal stiffness [Unknown]
  - Head discomfort [Unknown]
  - Dehydration [Unknown]
  - Cough [Unknown]
  - Eye pain [Unknown]
  - Myalgia [Unknown]
  - Bone pain [Unknown]
  - Palmar-plantar erythrodysaesthesia syndrome [Unknown]
  - Peripheral swelling [Unknown]
  - Balance disorder [Unknown]
  - Fall [Unknown]
  - Joint swelling [Unknown]
  - Product use issue [Unknown]

NARRATIVE: CASE EVENT DATE: 20220101
